FAERS Safety Report 4606309-0 (Version None)
Quarter: 2005Q2

REPORT INFORMATION
  Report Type: 
  Country: None (occurrence: None)
  Receive Date: 20050303
  Receipt Date: 20041222
  Transmission Date: 20051028
  Serious: No
  Sender: FDA-Public Use
  Company Number: 200421228BWH

PATIENT
  Sex: Male

DRUGS (14)
  1. LEVITRA [Suspect]
     Indication: ERECTILE DYSFUNCTION
     Dosage: 20 MG, TOTAL DAILY, ORAL
     Route: 048
     Dates: start: 20041221
  2. MULTI-VITAMIN [Concomitant]
  3. DHEA [Concomitant]
  4. DIM [Concomitant]
  5. ANDROGEL [Concomitant]
  6. ACID CLOVER [Concomitant]
  7. CLONAZEPAM [Concomitant]
  8. TOPROL-XL [Concomitant]
  9. POTASSIUM CL [Concomitant]
  10. ASPIRIN [Concomitant]
  11. LIPITOR [Concomitant]
  12. ALTACE [Concomitant]
  13. HYDROCHLOROTHIAZIDE [Concomitant]
  14. COUMADIN [Concomitant]

REACTIONS (1)
  - ERECTILE DYSFUNCTION [None]
